FAERS Safety Report 15335161 (Version 1)
Quarter: 2018Q3

REPORT INFORMATION
  Report Type: Spontaneous
  Country: HR (occurrence: HR)
  Receive Date: 20180830
  Receipt Date: 20180830
  Transmission Date: 20181010
  Serious: Yes (Hospitalization)
  Sender: FDA-Public Use
  Company Number: HR-BAYER-2018-160545

PATIENT
  Age: 26 Year
  Sex: Male

DRUGS (5)
  1. KETOPROFEN (SYSTEMIC FORMULATION) [Interacting]
     Active Substance: KETOPROFEN
  2. PIPERACILLIN AND TAZOBACTAM [Interacting]
     Active Substance: PIPERACILLIN SODIUM\TAZOBACTAM SODIUM
  3. METHOTREXATE. [Interacting]
     Active Substance: METHOTREXATE
     Indication: ACUTE LYMPHOCYTIC LEUKAEMIA
  4. PANTOPRAZOLE [Interacting]
     Active Substance: PANTOPRAZOLE
  5. CIPROFLOXACIN. [Suspect]
     Active Substance: CIPROFLOXACIN

REACTIONS (6)
  - Posterior reversible encephalopathy syndrome [None]
  - Agranulocytosis [None]
  - Drug-induced liver injury [None]
  - Acute kidney injury [None]
  - Neutropenia [None]
  - Labelled drug-drug interaction medication error [None]
